FAERS Safety Report 7213437-2 (Version None)
Quarter: 2010Q4

REPORT INFORMATION
  Report Type: 
  Country: None (occurrence: None)
  Receive Date: 20101229
  Receipt Date: 20101216
  Transmission Date: 20110411
  Serious: Yes (Other)
  Sender: FDA-Public Use
  Company Number: 2010TP006

PATIENT
  Sex: Female

DRUGS (1)
  1. HYDROCODONE POLISTIREX AND CHLORPHENIRAMNE POLISTIREX [Suspect]
     Indication: PRODUCT USED FOR UNKNOWN INDICATION

REACTIONS (1)
  - APPARENT DEATH [None]
